FAERS Safety Report 24369293 (Version 1)
Quarter: 2024Q3

REPORT INFORMATION
  Report Type: Report from Study
  Country: US (occurrence: US)
  Receive Date: 20240927
  Receipt Date: 20240927
  Transmission Date: 20241017
  Serious: No
  Sender: ROCHE
  Company Number: US-ROCHE-3373303

PATIENT
  Age: 56 Year
  Sex: Female

DRUGS (4)
  1. LUCENTIS [Suspect]
     Active Substance: RANIBIZUMAB
     Indication: Type 2 diabetes mellitus
     Dosage: SYRINGE IN RIGHT EYE (OD), QUANTITY: 1, REFILLS: 1 YEAR?DATE OF SERVICE: 01/JUN/2023, 06/JUL/2023, 0
     Route: 050
  2. LUCENTIS [Suspect]
     Active Substance: RANIBIZUMAB
     Indication: Bell^s palsy
     Dosage: SYRINGE IN RIGHT EYE (OD), QUANTITY: 1, REFILLS: 1 YEAR?DATE OF SERVICE: 01/JUN/2023, 06/JUL/2023, 0
     Route: 050
  3. LUCENTIS [Suspect]
     Active Substance: RANIBIZUMAB
     Indication: Diabetic retinopathy
  4. LUCENTIS [Suspect]
     Active Substance: RANIBIZUMAB
     Indication: Macular oedema

REACTIONS (2)
  - Off label use [Unknown]
  - No adverse event [Unknown]
